FAERS Safety Report 15365481 (Version 1)
Quarter: 2018Q3

REPORT INFORMATION
  Report Type: Spontaneous
  Country: US (occurrence: US)
  Receive Date: 20180910
  Receipt Date: 20180910
  Transmission Date: 20181010
  Serious: Yes (Other)
  Sender: FDA-Public Use
  Company Number: US-ACCORD-071520

PATIENT
  Age: 68 Year
  Sex: Female
  Weight: 92.53 kg

DRUGS (1)
  1. ESCITALOPRAM [Suspect]
     Active Substance: ESCITALOPRAM OXALATE
     Indication: DEPRESSION
     Dosage: STRENGTH: 10 MG
     Route: 048
     Dates: start: 20180808, end: 20180810

REACTIONS (6)
  - Blood urine present [Recovering/Resolving]
  - Diarrhoea [Recovering/Resolving]
  - Dry mouth [Recovering/Resolving]
  - Asthenia [Recovering/Resolving]
  - Haematemesis [Recovering/Resolving]
  - Abdominal pain upper [Recovering/Resolving]
